FAERS Safety Report 8828912 (Version 1)
Quarter: 2012Q4

REPORT INFORMATION
  Report Type: Spontaneous
  Country: GB (occurrence: None)
  Receive Date: 20121004
  Receipt Date: 20121004
  Transmission Date: 20130627
  Serious: Yes (Life-Threatening, Hospitalization, Other)
  Sender: FDA-Public Use
  Company Number: GB-DEXPHARM-20121267

PATIENT
  Age: 48 Year
  Sex: Female

DRUGS (5)
  1. CHLORHEXIDINE [Suspect]
     Dosage: DAILY RINSE, 1 DF DOSAGE FORM, SEP. DOSAGES/INTERVAL 1 IN 1 D, CUMULATIVE DOSE: 1.0 DF DOSAGE FORM
     Route: 050
     Dates: start: 20120901, end: 20120901
  2. EPIPEN FLUOXETINE [Concomitant]
  3. METRONIDAZOLE [Concomitant]
  4. NAPROXEN TOPIRAMATE [Concomitant]
  5. .. [Concomitant]

REACTIONS (1)
  - Anaphylactic reaction [None]
